FAERS Safety Report 4861160-1 (Version None)
Quarter: 2005Q4

REPORT INFORMATION
  Report Type: 
  Country: None (occurrence: None)
  Receive Date: 20051220
  Receipt Date: 20051214
  Transmission Date: 20060501
  Serious: Yes (Life-Threatening, Hospitalization)
  Sender: FDA-Public Use
  Company Number: 2005AP06412

PATIENT
  Age: 21896 Day
  Sex: Female

DRUGS (6)
  1. TAMOXIFEN [Suspect]
     Indication: PROPHYLAXIS
     Route: 048
     Dates: start: 20000925, end: 20050418
  2. EVISTA [Concomitant]
  3. FLIXOTIDE [Concomitant]
  4. ASPIRIN [Concomitant]
     Dosage: LOW DOSE
     Dates: start: 20050428
  5. VENTOLIN [Concomitant]
  6. ATRAVENT [Concomitant]

REACTIONS (2)
  - HEMIPARESIS [None]
  - TRANSIENT ISCHAEMIC ATTACK [None]
